FAERS Safety Report 6403280-6 (Version None)
Quarter: 2009Q4

REPORT INFORMATION
  Report Type: 
  Country: None (occurrence: None)
  Receive Date: 20091016
  Receipt Date: 20091005
  Transmission Date: 20100525
  Serious: Yes (Hospitalization)
  Sender: FDA-Public Use
  Company Number: JP-PFIZER INC-2009224396

PATIENT
  Age: 78 Year

DRUGS (5)
  1. SUNITINIB MALATE [Suspect]
     Indication: RENAL CELL CARCINOMA
     Dosage: 37.5 MG, 1X/DAY
     Route: 048
     Dates: start: 20090501, end: 20090518
  2. BASEN [Concomitant]
     Dosage: UNK
     Route: 048
     Dates: end: 20090522
  3. AMARYL [Concomitant]
     Dosage: UNK
     Route: 048
     Dates: end: 20090522
  4. NORVASC [Concomitant]
     Dosage: UNK
     Route: 048
  5. DIOVANE [Concomitant]
     Dosage: UNK
     Route: 048

REACTIONS (1)
  - RENAL FAILURE ACUTE [None]
